FAERS Safety Report 8189718-5 (Version None)
Quarter: 2012Q1

REPORT INFORMATION
  Report Type: 
  Country: None (occurrence: None)
  Receive Date: 20120307
  Receipt Date: 20120302
  Transmission Date: 20120608
  Serious: Yes (Death, Hospitalization)
  Sender: FDA-Public Use
  Company Number: AR-SANOFI-AVENTIS-2010SA004729

PATIENT
  Age: 31 Year
  Sex: Female

DRUGS (2)
  1. ENOXAPARIN SODIUM [Suspect]
     Route: 058
     Dates: start: 20091101, end: 20100106
  2. THYROID THERAPY [Concomitant]
     Indication: THYROID DISORDER

REACTIONS (1)
  - PULMONARY EMBOLISM [None]
